FAERS Safety Report 5727495-5 (Version None)
Quarter: 2008Q2

REPORT INFORMATION
  Report Type: 
  Country: None (occurrence: None)
  Receive Date: 20080505
  Receipt Date: 20080421
  Transmission Date: 20081010
  Serious: Yes (Other)
  Sender: FDA-Public Use
  Company Number: GB-ROCHE-556491

PATIENT
  Sex: Female
  Weight: 110 kg

DRUGS (14)
  1. ORLISTAT [Suspect]
     Indication: OBESITY
     Route: 048
     Dates: start: 20071022, end: 20071205
  2. ORLISTAT [Suspect]
     Route: 048
     Dates: end: 20080325
  3. ACETAMINOPHEN W/ CODEINE [Concomitant]
     Route: 048
  4. ACETAMINOPHEN W/ CODEINE [Concomitant]
     Route: 048
  5. LANSOPRAZOLE [Concomitant]
     Dosage: 15MG AM, 30MG PM
     Route: 048
  6. DICLOFENAC [Concomitant]
     Route: 048
  7. DICLOFENAC [Concomitant]
     Dosage: STOPPED FOR A FEW DAYS AS NAUSEATED.
     Route: 048
     Dates: end: 20070715
  8. CITALOPRAM HYDROBROMIDE [Concomitant]
     Indication: DEPRESSION
     Route: 048
  9. DOMPERIDONE [Concomitant]
     Dosage: TAKEN BEFORE MEALS
     Route: 048
  10. ZOMIG [Concomitant]
     Indication: MIGRAINE
     Route: 048
  11. BECLOMETHASONE DIPROPIONATE [Concomitant]
     Dosage: AQUEOUS NASAL SPRAY. 200 DOSE NASAL SPRAY, TWICE DAILY.
  12. PEPTAC [Concomitant]
  13. PEPTAC [Concomitant]
  14. PEPTAC [Concomitant]

REACTIONS (1)
  - BREAST CANCER [None]
